FAERS Safety Report 11462612 (Version 1)
Quarter: 2015Q3

REPORT INFORMATION
  Report Type: Spontaneous
  Country: US (occurrence: US)
  Receive Date: 20150831
  Receipt Date: 20150831
  Transmission Date: 20151125
  Serious: No
  Sender: FDA-Public Use
  Company Number: US-ELI_LILLY_AND_COMPANY-US201012004242

PATIENT
  Age: 53 Year
  Sex: Female

DRUGS (1)
  1. CYMBALTA [Suspect]
     Active Substance: DULOXETINE HYDROCHLORIDE
     Indication: FIBROMYALGIA
     Dosage: 20 MG, DAILY (1/D)
     Dates: start: 20101211

REACTIONS (11)
  - Dysgeusia [Unknown]
  - Pallor [Unknown]
  - Altered visual depth perception [Unknown]
  - Tremor [Unknown]
  - Head discomfort [Unknown]
  - Insomnia [Unknown]
  - Feeling abnormal [Unknown]
  - Somnolence [Unknown]
  - Palpitations [Unknown]
  - Nocturia [Unknown]
  - Nervousness [Unknown]
